FAERS Safety Report 12080095 (Version 1)
Quarter: 2016Q1

REPORT INFORMATION
  Report Type: Spontaneous
  Country: CA (occurrence: CA)
  Receive Date: 20160216
  Receipt Date: 20160216
  Transmission Date: 20160526
  Serious: Yes (Other)
  Sender: FDA-Public Use
  Company Number: CA-PFIZER INC-2016081852

PATIENT
  Age: 18 Year
  Sex: Male
  Weight: 108.84 kg

DRUGS (1)
  1. EFFEXOR XR [Suspect]
     Active Substance: VENLAFAXINE HYDROCHLORIDE
     Indication: ANXIETY DISORDER
     Dosage: 37.5 MG, 1X/DAY
     Route: 048

REACTIONS (6)
  - Dystonia [Recovered/Resolved]
  - Tachyphrenia [Recovered/Resolved]
  - Oculogyric crisis [Recovered/Resolved]
  - Muscle tightness [Recovered/Resolved]
  - Mydriasis [Recovered/Resolved]
  - Photosensitivity reaction [Recovered/Resolved]
